FAERS Safety Report 4312821-4 (Version None)
Quarter: 2004Q1

REPORT INFORMATION
  Report Type: 
  Country: None (occurrence: None)
  Receive Date: 20040304
  Receipt Date: 20040226
  Transmission Date: 20041129
  Serious: Yes (Hospitalization)
  Sender: FDA-Public Use
  Company Number: F01200400305

PATIENT
  Age: 50 Year
  Sex: Male

DRUGS (1)
  1. (FONDAPARINUX SODIUM) - SOLUTION - 2.5 MG [Suspect]
     Indication: THROMBOSIS PROPHYLAXIS
     Dosage: 2.5 MG QD
     Route: 058
     Dates: start: 20040115, end: 20040119

REACTIONS (2)
  - POST PROCEDURAL PAIN [None]
  - POSTOPERATIVE INFECTION [None]
